FAERS Safety Report 8157785-0 (Version None)
Quarter: 2012Q1

REPORT INFORMATION
  Report Type: 
  Country: None (occurrence: None)
  Receive Date: 20120222
  Receipt Date: 20120210
  Transmission Date: 20120608
  Serious: Yes (Life-Threatening, Hospitalization)
  Sender: FDA-Public Use
  Company Number: FI-ROCHE-1039457

PATIENT
  Age: 65 Year
  Sex: Female

DRUGS (4)
  1. MABTHERA [Suspect]
     Indication: B-CELL LYMPHOMA
  2. MITOXANTRONE [Concomitant]
     Indication: B-CELL LYMPHOMA
  3. ETOPOSIDE [Concomitant]
     Indication: B-CELL LYMPHOMA
  4. IFOSFAMIDE [Concomitant]
     Indication: B-CELL LYMPHOMA

REACTIONS (2)
  - PULMONARY EMBOLISM [None]
  - LUNG INFILTRATION [None]
